FAERS Safety Report 9338373 (Version 1)
Quarter: 2013Q2

REPORT INFORMATION
  Report Type: Spontaneous
  Country: US (occurrence: US)
  Receive Date: 20130610
  Receipt Date: 20130610
  Transmission Date: 20140414
  Serious: Yes (Hospitalization, Other)
  Sender: FDA-Public Use
  Company Number: US-ELI_LILLY_AND_COMPANY-US201305009746

PATIENT
  Age: 79 Year
  Sex: Female

DRUGS (20)
  1. FORTEO [Suspect]
     Indication: OSTEOPOROSIS
     Dosage: UNK, QD
     Dates: start: 20110820
  2. FORTEO [Suspect]
     Dosage: UNK, QD
  3. PRAVASTATIN [Concomitant]
     Dosage: UNK
  4. ZYRTEC [Concomitant]
     Dosage: UNK
  5. VITAMIN D [Concomitant]
     Dosage: UNK
  6. MAXZIDE [Concomitant]
     Dosage: UNK
  7. COREG [Concomitant]
     Dosage: UNK
  8. ALLOPURINOL [Concomitant]
     Dosage: UNK
  9. JANUVIA [Concomitant]
     Dosage: UNK
  10. ASPIRIN [Concomitant]
     Dosage: LOW DOSE
  11. ZANTAC [Concomitant]
     Dosage: UNK
  12. BUSPAR [Concomitant]
     Dosage: UNK
  13. BENICAR [Concomitant]
     Dosage: UNK
  14. SINGULAIR [Concomitant]
     Dosage: UNK
  15. VITAMIN B12 [Concomitant]
     Dosage: UNK
  16. PROZAC [Concomitant]
     Dosage: UNK
  17. VITAMIN C [Concomitant]
     Dosage: UNK
  18. CALCIUM WITH VITAMIN D             /00944201/ [Concomitant]
     Dosage: UNK
  19. MELOXICAM [Concomitant]
     Dosage: UNK
  20. CARDIZEM                           /00489701/ [Concomitant]
     Dosage: UNK

REACTIONS (3)
  - Hip fracture [Recovered/Resolved]
  - Fall [Recovered/Resolved]
  - Urinary tract infection [Unknown]
